FAERS Safety Report 21602406 (Version 1)
Quarter: 2022Q4

REPORT INFORMATION
  Report Type: Spontaneous
  Country: CN (occurrence: None)
  Receive Date: 20221116
  Receipt Date: 20221116
  Transmission Date: 20230112
  Serious: Yes (Other)
  Sender: FDA-Public Use
  Company Number: CN-ROCHE-3219231

PATIENT
  Age: 57 Year
  Sex: Female

DRUGS (20)
  1. TRASTUZUMAB [Suspect]
     Active Substance: TRASTUZUMAB
     Indication: Breast cancer metastatic
     Dosage: 10/APR/2020, 02/MAY/2020, 26/MAY/2020
     Route: 065
  2. TRASTUZUMAB [Suspect]
     Active Substance: TRASTUZUMAB
     Route: 065
     Dates: start: 20200616
  3. TRASTUZUMAB [Suspect]
     Active Substance: TRASTUZUMAB
     Dosage: 08/JUL/2020, 28/JUL/2020, 20/AUG/2020, 10/SEP/2020
     Route: 065
  4. TRASTUZUMAB [Suspect]
     Active Substance: TRASTUZUMAB
     Route: 065
     Dates: start: 20201001
  5. TRASTUZUMAB [Suspect]
     Active Substance: TRASTUZUMAB
     Dosage: 17 CYCLES
     Route: 065
     Dates: start: 20201022
  6. TRASTUZUMAB [Suspect]
     Active Substance: TRASTUZUMAB
     Dosage: SINGLE TARGET TREATMENT FOR 7 CYCLES
     Route: 065
     Dates: start: 20211015
  7. PERTUZUMAB [Suspect]
     Active Substance: PERTUZUMAB
     Indication: Breast cancer metastatic
     Route: 065
     Dates: start: 20200616
  8. PERTUZUMAB [Suspect]
     Active Substance: PERTUZUMAB
     Dosage: 08/JUL/2020, 28/JUL/2020, 20/AUG/2020, 10/SEP/2020
     Route: 065
  9. PERTUZUMAB [Suspect]
     Active Substance: PERTUZUMAB
     Route: 065
     Dates: start: 20201001
  10. PERTUZUMAB [Suspect]
     Active Substance: PERTUZUMAB
     Dosage: 17 CYCLES
     Route: 065
     Dates: start: 20201022
  11. ZOLEDRONIC ACID [Concomitant]
     Active Substance: ZOLEDRONIC ACID
     Indication: Metastases to bone
     Dosage: 10/APR/2020, 02/MAY/2020, 26/MAY/2020
  12. ZOLEDRONIC ACID [Concomitant]
     Active Substance: ZOLEDRONIC ACID
     Dates: start: 20200616
  13. ZOLEDRONIC ACID [Concomitant]
     Active Substance: ZOLEDRONIC ACID
     Dosage: 08/JUL/2020, 28/JUL/2020, 20/AUG/2020, 10/SEP/2020
  14. ZOLEDRONIC ACID [Concomitant]
     Active Substance: ZOLEDRONIC ACID
     Dosage: 17 CYCLES
     Dates: start: 20201022
  15. ZOLEDRONIC ACID [Concomitant]
     Active Substance: ZOLEDRONIC ACID
     Dosage: 7 CYCLES
     Dates: start: 20211015
  16. ZOLEDRONIC ACID [Concomitant]
     Active Substance: ZOLEDRONIC ACID
     Dates: start: 20220301
  17. ANASTROZOLE [Concomitant]
     Active Substance: ANASTROZOLE
     Dosage: PER DAY, 17 CYCLES
     Dates: start: 20201022
  18. ANASTROZOLE [Concomitant]
     Active Substance: ANASTROZOLE
     Dosage: PER DAY, 7 CYCLES
     Dates: start: 20211015
  19. PYROTINIB [Concomitant]
     Active Substance: PYROTINIB
     Indication: Breast cancer metastatic
     Dosage: DF = TABLET
     Route: 048
     Dates: start: 20220301
  20. EXEMESTANE [Concomitant]
     Active Substance: EXEMESTANE
     Indication: Breast cancer metastatic
     Dosage: DF = TABLET
     Route: 048
     Dates: start: 20220301

REACTIONS (1)
  - Palmar-plantar erythrodysaesthesia syndrome [Unknown]

NARRATIVE: CASE EVENT DATE: 20201001
